FAERS Safety Report 14611827 (Version 1)
Quarter: 2018Q1

REPORT INFORMATION
  Report Type: Spontaneous
  Country: US (occurrence: US)
  Receive Date: 20180308
  Receipt Date: 20180308
  Transmission Date: 20180509
  Serious: No
  Sender: FDA-Public Use
  Company Number: US-PFIZER INC-2018097354

PATIENT
  Age: 33 Year
  Sex: Female

DRUGS (1)
  1. MARCAINE [Suspect]
     Active Substance: BUPIVACAINE HYDROCHLORIDE
     Dosage: UNK

REACTIONS (1)
  - Drug ineffective [Unknown]
